FAERS Safety Report 4629015-5 (Version None)
Quarter: 2005Q2

REPORT INFORMATION
  Report Type: 
  Country: None (occurrence: None)
  Receive Date: 20050405
  Receipt Date: 20050405
  Transmission Date: 20051028
  Serious: Yes (Other)
  Sender: FDA-Public Use
  Company Number: None

PATIENT
  Age: 40 Year
  Sex: Male
  Weight: 81.6475 kg

DRUGS (3)
  1. AMITRYPTILINE 10MG [Suspect]
     Indication: BACK PAIN
     Dosage: 10 MG 1 AT BEDTIME ORAL
     Route: 048
     Dates: start: 20040701, end: 20050330
  2. AMITRYPTILINE 10MG [Suspect]
     Indication: INSOMNIA
     Dosage: 10 MG 1 AT BEDTIME ORAL
     Route: 048
     Dates: start: 20040701, end: 20050330
  3. AMITRYPTILINE 10MG [Suspect]
     Indication: PAIN IN EXTREMITY
     Dosage: 10 MG 1 AT BEDTIME ORAL
     Route: 048
     Dates: start: 20040701, end: 20050330

REACTIONS (4)
  - ASTHENIA [None]
  - DIARRHOEA [None]
  - GASTROINTESTINAL DISORDER [None]
  - MALAISE [None]
